FAERS Safety Report 15590003 (Version 2)
Quarter: 2019Q3

REPORT INFORMATION
  Report Type: Report from Study
  Country: JP (occurrence: JP)
  Receive Date: 20181106
  Receipt Date: 20190822
  Transmission Date: 20191004
  Serious: Yes (Death, Other)
  Sender: FDA-Public Use
  Company Number: JP-KYOWAKIRIN-2018AKK001508AA

PATIENT

DRUGS (41)
  1. DEXCHLORPHENIRAMINE MALEATE. [Concomitant]
     Active Substance: DEXCHLORPHENIRAMINE MALEATE
     Dosage: UNK, 1X/2 WEEKS
     Route: 065
     Dates: start: 20170529, end: 20170612
  2. TAZOPIPE [Concomitant]
     Active Substance: PIPERACILLIN SODIUM\TAZOBACTAM SODIUM
     Indication: FEBRILE NEUTROPENIA
     Dosage: UNK
     Route: 065
     Dates: end: 20170520
  3. TAZOPIPE [Concomitant]
     Active Substance: PIPERACILLIN SODIUM\TAZOBACTAM SODIUM
     Dosage: UNK
     Route: 065
     Dates: start: 20170728, end: 20170804
  4. MINOCYCLINE HYDROCHLORIDE. [Concomitant]
     Active Substance: MINOCYCLINE HYDROCHLORIDE
     Dosage: UNK
     Route: 065
     Dates: start: 20170529, end: 20170616
  5. FILGRASTIM [Concomitant]
     Active Substance: FILGRASTIM
     Dosage: UNK
     Route: 065
     Dates: start: 20170629, end: 20170814
  6. DENOSINE [GANCICLOVIR SODIUM] [Concomitant]
     Indication: CYTOMEGALOVIRUS VIRAEMIA
     Dosage: UNK
     Route: 042
     Dates: start: 20170807, end: 20170815
  7. AMIKACIN SULFATE. [Concomitant]
     Active Substance: AMIKACIN SULFATE
     Indication: FEBRILE NEUTROPENIA
     Dosage: UNK
     Route: 065
     Dates: start: 20170807, end: 20170814
  8. ENALAPRIL                          /00574902/ [Concomitant]
     Active Substance: ENALAPRIL
     Dosage: UNK
     Route: 048
     Dates: start: 20170519, end: 20170522
  9. ZOLPIDEM [Concomitant]
     Active Substance: ZOLPIDEM TARTRATE
     Indication: INSOMNIA
     Dosage: UNK
     Route: 048
  10. GRAN SYRINGE 75 [Concomitant]
     Dosage: UNK
     Route: 065
     Dates: start: 20170520, end: 20170524
  11. TAZOPIPE [Concomitant]
     Active Substance: PIPERACILLIN SODIUM\TAZOBACTAM SODIUM
     Dosage: UNK
     Route: 065
     Dates: start: 20170629, end: 20170704
  12. BFLUID [Concomitant]
     Active Substance: AMINO ACIDS\DEXTROSE\ELECTROLYTES NOS\VITAMINS
     Indication: NUTRITIONAL SUPPLEMENTATION
     Dosage: UNK
     Route: 065
     Dates: start: 20170519, end: 20170521
  13. FILGRASTIM [Concomitant]
     Active Substance: FILGRASTIM
     Dosage: UNK
     Route: 065
     Dates: start: 20170608, end: 20170611
  14. URSODEOXYCHOLIC ACID [Concomitant]
     Active Substance: URSODIOL
     Dosage: UNK
     Route: 048
  15. ACETAMINOPHEN. [Concomitant]
     Active Substance: ACETAMINOPHEN
     Indication: PROPHYLAXIS
     Dosage: UNK, QD
     Route: 065
     Dates: start: 20170519, end: 20170519
  16. HYDROCORTISONE. [Concomitant]
     Active Substance: HYDROCORTISONE
     Indication: PROPHYLAXIS
     Dosage: 100 MG, QD
     Route: 065
     Dates: start: 20170519, end: 20170519
  17. BFLUID [Concomitant]
     Active Substance: AMINO ACIDS\DEXTROSE\ELECTROLYTES NOS\VITAMINS
     Dosage: UNK
     Route: 065
     Dates: start: 20170525, end: 20170525
  18. MEROPENEM. [Concomitant]
     Active Substance: MEROPENEM
     Indication: FEBRILE NEUTROPENIA
     Dosage: UNK
     Route: 065
     Dates: start: 20170520, end: 20170527
  19. FILGRASTIM [Concomitant]
     Active Substance: FILGRASTIM
     Indication: FEBRILE NEUTROPENIA
     Dosage: UNK
     Route: 065
     Dates: start: 20170605, end: 20170605
  20. MAGNESIUM OXIDE. [Concomitant]
     Active Substance: MAGNESIUM OXIDE
     Dosage: UNK
     Route: 048
     Dates: end: 20170529
  21. REVLIMID [Suspect]
     Active Substance: LENALIDOMIDE
     Dosage: UNK
     Route: 048
  22. FUNGUARD [Concomitant]
     Active Substance: MICAFUNGIN SODIUM
     Dosage: UNK
     Route: 065
     Dates: start: 20170522, end: 20170527
  23. BIOFERMIN R [Concomitant]
     Active Substance: DIETARY SUPPLEMENT\PROBIOTICS
     Indication: PROPHYLAXIS
     Dosage: UNK
     Route: 048
  24. DAIKENCHUTO [Concomitant]
     Active Substance: HERBALS
     Dosage: UNK
     Route: 048
     Dates: start: 20170522, end: 20170523
  25. CELECOX [Concomitant]
     Active Substance: CELECOXIB
     Indication: PROPHYLAXIS
     Dosage: UNK
     Route: 048
     Dates: start: 20170601, end: 20170608
  26. VANCOMYCIN [VANCOMYCIN HYDROCHLORIDE] [Concomitant]
     Active Substance: VANCOMYCIN HYDROCHLORIDE
     Indication: FEBRILE NEUTROPENIA
     Dosage: UNK
     Route: 065
     Dates: start: 20170714, end: 20170815
  27. ACETAMINOPHEN. [Concomitant]
     Active Substance: ACETAMINOPHEN
     Dosage: UNK, 1X/2 WEEKS
     Route: 065
     Dates: start: 20170529, end: 20170612
  28. SULFAMETHOXAZOLE AND TRIMETHOPRIM [Concomitant]
     Active Substance: SULFAMETHOXAZOLE\TRIMETHOPRIM
     Indication: INFECTION PROPHYLAXIS
     Dosage: UNK
     Route: 048
     Dates: start: 20170427, end: 20170814
  29. MEROPENEM. [Concomitant]
     Active Substance: MEROPENEM
     Dosage: UNK
     Route: 065
     Dates: start: 20170704, end: 20170728
  30. FAMOTIDINE. [Concomitant]
     Active Substance: FAMOTIDINE
     Indication: PROPHYLAXIS
     Dosage: UNK
     Route: 048
  31. FEBURIC [Concomitant]
     Active Substance: FEBUXOSTAT
     Indication: PROPHYLAXIS
     Dosage: UNK
     Route: 048
     Dates: end: 20170531
  32. MOGAMULIZUMAB [Suspect]
     Active Substance: MOGAMULIZUMAB
     Indication: ADULT T-CELL LYMPHOMA/LEUKAEMIA
     Dosage: 1 MG/KG, 1X/2 WEEKS
     Route: 041
     Dates: start: 20170529, end: 20170612
  33. HYDROCORTISONE. [Concomitant]
     Active Substance: HYDROCORTISONE
     Dosage: 100 MG, 1X/2 WEEKS
     Route: 065
     Dates: start: 20170529, end: 20170612
  34. ITRACONAZOLE. [Concomitant]
     Active Substance: ITRACONAZOLE
     Indication: INFECTION PROPHYLAXIS
     Dosage: UNK
     Route: 048
     Dates: start: 20170427, end: 20170807
  35. NEOPAREN [Concomitant]
     Active Substance: AMINO ACIDS\DEXTROSE\ELECTROLYTES NOS\VITAMINS
     Indication: NUTRITIONAL SUPPLEMENTATION
     Dosage: UNK
     Route: 065
     Dates: start: 20170522, end: 20170524
  36. K-SUPPLY [Concomitant]
     Active Substance: POTASSIUM CHLORIDE
     Dosage: UNK
     Route: 048
     Dates: end: 20170529
  37. MOGAMULIZUMAB [Suspect]
     Active Substance: MOGAMULIZUMAB
     Dosage: 1 MG/KG, QD
     Route: 041
     Dates: start: 20170519, end: 20170519
  38. DEXCHLORPHENIRAMINE MALEATE. [Concomitant]
     Active Substance: DEXCHLORPHENIRAMINE MALEATE
     Indication: PROPHYLAXIS
     Dosage: UNK, QD
     Route: 065
     Dates: start: 20170519, end: 20170519
  39. TAZOPIPE [Concomitant]
     Active Substance: PIPERACILLIN SODIUM\TAZOBACTAM SODIUM
     Dosage: UNK
     Route: 065
     Dates: start: 20170610, end: 20170617
  40. CYMBALTA [Concomitant]
     Active Substance: DULOXETINE HYDROCHLORIDE
     Dosage: UNK
     Route: 048
     Dates: start: 20170530
  41. AMBISOME [Concomitant]
     Active Substance: AMPHOTERICIN B
     Indication: FEBRILE NEUTROPENIA
     Dosage: UNK
     Route: 065
     Dates: start: 20170807, end: 20170814

REACTIONS (5)
  - Febrile neutropenia [Fatal]
  - Cardiac failure [Fatal]
  - Erythema [Recovering/Resolving]
  - Tumour invasion [Recovering/Resolving]
  - Cytomegalovirus viraemia [Fatal]

NARRATIVE: CASE EVENT DATE: 20170629
